FAERS Safety Report 9349294 (Version 1)
Quarter: 2013Q2

REPORT INFORMATION
  Report Type: Spontaneous
  Country: US (occurrence: US)
  Receive Date: 20130614
  Receipt Date: 20130614
  Transmission Date: 20140414
  Serious: Yes (Hospitalization)
  Sender: FDA-Public Use
  Company Number: US-B.I. PHARMACEUTICALS,INC./RIDGEFIELD-2013-BI-12182BP

PATIENT
  Age: 71 Year
  Sex: Female
  Weight: 79.38 kg

DRUGS (6)
  1. PRADAXA [Suspect]
     Indication: ANTICOAGULANT THERAPY
     Dosage: 300 MG
     Dates: start: 20110901, end: 20110917
  2. PRADAXA [Suspect]
     Indication: ATRIAL FIBRILLATION
  3. RYTHMOL [Concomitant]
     Dosage: 675 MG
  4. ASPIRIN [Concomitant]
     Dosage: 325 MG
  5. VITAMIN B COMPLEX [Concomitant]
  6. FISH OIL [Concomitant]

REACTIONS (1)
  - Gastrointestinal haemorrhage [Unknown]
